FAERS Safety Report 14827340 (Version 3)
Quarter: 2019Q2

REPORT INFORMATION
  Report Type: Spontaneous
  Country: US (occurrence: US)
  Receive Date: 20180430
  Receipt Date: 20190430
  Transmission Date: 20190711
  Serious: No
  Sender: FDA-Public Use
  Company Number: US-ABBVIE-17P-163-2132672-00

PATIENT
  Sex: Female

DRUGS (2)
  1. CREON [Suspect]
     Active Substance: PANCRELIPASE AMYLASE\PANCRELIPASE LIPASE\PANCRELIPASE PROTEASE
     Indication: PANCREATIC FAILURE
     Route: 065
  2. ENSURE HIGH PROTEIN [Concomitant]
     Indication: SUPPLEMENTATION THERAPY

REACTIONS (16)
  - Malaise [Unknown]
  - Feeling guilty [Unknown]
  - Heart rate increased [Unknown]
  - Weight increased [Unknown]
  - Dyspepsia [Unknown]
  - Weight loss poor [Unknown]
  - Exercise tolerance decreased [Unknown]
  - Food craving [Unknown]
  - Pain [Unknown]
  - Fatigue [Unknown]
  - Vomiting [Unknown]
  - Abdominal pain upper [Unknown]
  - Menopause [Not Recovered/Not Resolved]
  - Stress [Unknown]
  - Nausea [Unknown]
  - Gastrointestinal disorder [Unknown]
